FAERS Safety Report 13191603 (Version 1)
Quarter: 2017Q1

REPORT INFORMATION
  Report Type: Spontaneous
  Country: US (occurrence: US)
  Receive Date: 20170207
  Receipt Date: 20170207
  Transmission Date: 20170428
  Serious: Yes (Hospitalization)
  Sender: FDA-Public Use
  Company Number: US-CLOVIS ONCOLOGY-CLO-2017-000035

PATIENT
  Age: 76 Year
  Sex: Female

DRUGS (1)
  1. RUBRACA [Suspect]
     Active Substance: RUCAPARIB CAMSYLATE
     Indication: OVARIAN NEOPLASM
     Dosage: 600 MG, BID
     Route: 048
     Dates: start: 20170125

REACTIONS (6)
  - Blood creatinine increased [Unknown]
  - Diarrhoea [Unknown]
  - Bone marrow failure [Unknown]
  - Feeding disorder [Unknown]
  - Dehydration [Unknown]
  - Hypotension [Unknown]

NARRATIVE: CASE EVENT DATE: 20170130
